FAERS Safety Report 19091552 (Version 1)
Quarter: 2021Q2

REPORT INFORMATION
  Report Type: Spontaneous
  Country: US (occurrence: US)
  Receive Date: 20210405
  Receipt Date: 20210405
  Transmission Date: 20210717
  Serious: No
  Sender: FDA-Public Use
  Company Number: US-AUROBINDO-AUR-APL-2020-056283

PATIENT
  Sex: Female
  Weight: 59 kg

DRUGS (6)
  1. THYROXIN [Concomitant]
     Active Substance: LEVOTHYROXINE
     Indication: HYPOTHYROIDISM
  2. PANTOPRAZOLE [Concomitant]
     Active Substance: PANTOPRAZOLE
     Indication: ANTACID THERAPY
     Dosage: UNK
     Route: 065
  3. MACROBID [Concomitant]
     Active Substance: NITROFURANTOIN\NITROFURANTOIN MONOHYDRATE
     Indication: URINARY TRACT INFECTION
     Dosage: UNK
     Route: 065
  4. SULFAMETHOXAZOLE AND TRIMETHOPRIM 800/160 MG [Suspect]
     Active Substance: SULFAMETHOXAZOLE\TRIMETHOPRIM
     Indication: URINARY TRACT INFECTION
     Dosage: 1 DOSAGE FORM, ONCE A DAY
     Route: 048
  5. THYROXIN [Concomitant]
     Active Substance: LEVOTHYROXINE
     Indication: THYROID DISORDER
     Dosage: 50 MILLIGRAM
     Route: 065
  6. SULFAMETHOXAZOLE AND TRIMETHOPRIM 800/160 MG [Suspect]
     Active Substance: SULFAMETHOXAZOLE\TRIMETHOPRIM
     Dosage: 1 DOSAGE FORM, ONCE A DAY
     Route: 048
     Dates: end: 20201030

REACTIONS (4)
  - Visual impairment [Unknown]
  - Dysuria [Unknown]
  - Dizziness [Unknown]
  - Nervousness [Unknown]
